FAERS Safety Report 19008023 (Version 1)
Quarter: 2021Q1

REPORT INFORMATION
  Report Type: Spontaneous
  Country: JP (occurrence: JP)
  Receive Date: 20210315
  Receipt Date: 20210315
  Transmission Date: 20210420
  Serious: Yes (Life-Threatening, Other)
  Sender: FDA-Public Use
  Company Number: JP-AMGEN-JPNSP2021038780

PATIENT
  Age: 70 Year
  Sex: Female

DRUGS (1)
  1. EVENITY [Suspect]
     Active Substance: ROMOSOZUMAB-AQQG
     Indication: OSTEOPOROSIS
     Dosage: 210 MILLIGRAM, QMO
     Route: 058
     Dates: start: 20200915, end: 20201215

REACTIONS (1)
  - Lung neoplasm malignant [Unknown]

NARRATIVE: CASE EVENT DATE: 202012
